APPROVED DRUG PRODUCT: CLOZAPINE
Active Ingredient: CLOZAPINE
Strength: 12.5MG
Dosage Form/Route: TABLET, ORALLY DISINTEGRATING;ORAL
Application: A090308 | Product #003 | TE Code: AB
Applicant: BARR LABORATORIES INC
Approved: Apr 9, 2018 | RLD: No | RS: No | Type: RX